FAERS Safety Report 9838936 (Version 2)
Quarter: 2014Q1

REPORT INFORMATION
  Report Type: Spontaneous
  Country: FR (occurrence: FR)
  Receive Date: 20140123
  Receipt Date: 20140305
  Transmission Date: 20141002
  Serious: No
  Sender: FDA-Public Use
  Company Number: FR-JNJFOC-20140110916

PATIENT
  Age: 47 Year
  Sex: Female

DRUGS (1)
  1. DUROGESIC [Suspect]
     Indication: ARTHRALGIA
     Route: 062

REACTIONS (7)
  - Poor quality drug administered [Unknown]
  - Poor quality drug administered [Unknown]
  - Product quality issue [Unknown]
  - Product quality issue [Unknown]
  - Product quality issue [Unknown]
  - Product quality issue [Unknown]
  - Wrong technique in drug usage process [Unknown]
